FAERS Safety Report 8425685-4 (Version None)
Quarter: 2012Q2

REPORT INFORMATION
  Report Type: 
  Country: None (occurrence: None)
  Receive Date: 20120611
  Receipt Date: 20120605
  Transmission Date: 20120825
  Serious: Yes (Other)
  Sender: FDA-Public Use
  Company Number: PHHY2012GR048053

PATIENT
  Age: 48 Year
  Sex: Female

DRUGS (1)
  1. LETROZOLE [Suspect]
     Indication: BREAST CANCER

REACTIONS (6)
  - TENOSYNOVITIS STENOSANS [None]
  - INFLAMMATION [None]
  - NODULE [None]
  - PARAESTHESIA [None]
  - POOR QUALITY SLEEP [None]
  - ARTHRALGIA [None]
